FAERS Safety Report 4852562-8 (Version None)
Quarter: 2005Q4

REPORT INFORMATION
  Report Type: 
  Country: None (occurrence: None)
  Receive Date: 20051123
  Receipt Date: 20050726
  Transmission Date: 20060501
  Serious: No
  Sender: FDA-Public Use
  Company Number: 05USA0153

PATIENT
  Age: 35 Year
  Sex: Male
  Weight: 81.6475 kg

DRUGS (1)
  1. GLIADEL [Suspect]
     Indication: GLIOBLASTOMA MULTIFORME
     Dates: start: 20050714

REACTIONS (2)
  - INTRACRANIAL HYPOTENSION [None]
  - PYREXIA [None]
